FAERS Safety Report 6383236-2 (Version None)
Quarter: 2009Q3

REPORT INFORMATION
  Report Type: 
  Country: None (occurrence: None)
  Receive Date: 20090929
  Receipt Date: 20090918
  Transmission Date: 20100115
  Serious: Yes (Other)
  Sender: FDA-Public Use
  Company Number: CERZ-1000935

PATIENT
  Age: 59 Year
  Sex: Female
  Weight: 47.2 kg

DRUGS (1)
  1. CEREZYME [Suspect]
     Indication: GAUCHER'S DISEASE
     Dosage: 800 U, Q2W, INTRAVENOUS
     Route: 042
     Dates: start: 20040127

REACTIONS (3)
  - BONE DISORDER [None]
  - KIDNEY INFECTION [None]
  - ROTATOR CUFF SYNDROME [None]
